FAERS Safety Report 12319304 (Version 1)
Quarter: 2016Q2

REPORT INFORMATION
  Report Type: Spontaneous
  Country: DE (occurrence: DE)
  Receive Date: 20160429
  Receipt Date: 20160429
  Transmission Date: 20160815
  Serious: Yes (Other)
  Sender: FDA-Public Use
  Company Number: DE-PFIZER INC-2016233232

PATIENT
  Age: 19 Year
  Sex: Female

DRUGS (2)
  1. LEIOS [Suspect]
     Active Substance: ETHINYL ESTRADIOL\LEVONORGESTREL
  2. LAMOTRIGIN [Concomitant]
     Active Substance: LAMOTRIGINE
     Dosage: 2X25MG
     Dates: start: 201603

REACTIONS (1)
  - Epilepsy [Unknown]
